FAERS Safety Report 8369775-3 (Version None)
Quarter: 2012Q2

REPORT INFORMATION
  Report Type: 
  Country: None (occurrence: None)
  Receive Date: 20120518
  Receipt Date: 20120514
  Transmission Date: 20120825
  Serious: Yes (Other)
  Sender: FDA-Public Use
  Company Number: JP-PFIZER INC-2011233087

PATIENT
  Age: 7 Year
  Sex: Female

DRUGS (3)
  1. SOMATROPIN [Suspect]
     Indication: BODY HEIGHT BELOW NORMAL
     Dosage: 2.7 MG, WEEKLY
     Dates: start: 20081027
  2. SOMATROPIN [Suspect]
     Indication: GROWTH HORMONE DEFICIENCY
     Dosage: 3 MG, WEEKLY
  3. SOMATROPIN [Suspect]
     Dosage: 3.3 MG, WEEKLY
     Dates: end: 20110512

REACTIONS (1)
  - OSTEOCHONDROSIS [None]
